FAERS Safety Report 8582268-3 (Version None)
Quarter: 2012Q3

REPORT INFORMATION
  Report Type: 
  Country: None (occurrence: None)
  Receive Date: 20120809
  Receipt Date: 20111122
  Transmission Date: 20120928
  Serious: Yes (Hospitalization, Other)
  Sender: FDA-Public Use
  Company Number: US-ROCHE-1004081

PATIENT
  Sex: Female
  Weight: 64.014 kg

DRUGS (20)
  1. ZELBORAF [Suspect]
     Indication: METASTATIC MALIGNANT MELANOMA
     Route: 065
     Dates: start: 20110907
  2. APREPITANT [Concomitant]
     Dates: start: 20101012
  3. AMBIEN [Concomitant]
     Dates: start: 20110308
  4. EMEND [Concomitant]
     Dosage: SOLUTION
     Route: 058
     Dates: start: 20101011
  5. EMEND [Concomitant]
  6. ESCITALOPRAM [Concomitant]
     Dates: start: 20110607
  7. ZOLPIDEM [Concomitant]
     Dates: end: 20110823
  8. NYSTATIN [Concomitant]
     Dates: start: 20110920
  9. ONDANSETRON [Concomitant]
     Dates: start: 20110517, end: 20110517
  10. PHYTONADIONE [Concomitant]
     Dates: start: 20110831
  11. ZELBORAF [Suspect]
     Dates: start: 20110915, end: 20110926
  12. DEXAMETHASONE [Concomitant]
     Dates: start: 20110823
  13. ROXICODONE [Concomitant]
     Dates: start: 20110913
  14. ZELBORAF [Suspect]
     Dates: start: 20111010
  15. TEMODAR [Concomitant]
  16. ZOLPIDEM [Concomitant]
     Dates: start: 20110920
  17. COUMADIN [Concomitant]
     Dates: start: 20110329
  18. KLOR-CON [Concomitant]
     Route: 048
  19. DEXAMETHASONE [Concomitant]
     Dates: start: 20110830, end: 20110830
  20. ONDANSETRON [Concomitant]
     Dates: start: 20110628

REACTIONS (5)
  - DEHYDRATION [None]
  - METASTASES TO CENTRAL NERVOUS SYSTEM [None]
  - RASH [None]
  - RENAL FAILURE ACUTE [None]
  - DIARRHOEA [None]
